FAERS Safety Report 9093814 (Version 1)
Quarter: 2013Q1

REPORT INFORMATION
  Report Type: Spontaneous
  Country: FR (occurrence: FR)
  Receive Date: 20130218
  Receipt Date: 20130218
  Transmission Date: 20140127
  Serious: Yes (Hospitalization)
  Sender: FDA-Public Use
  Company Number: FR-ELI_LILLY_AND_COMPANY-FR201302002231

PATIENT
  Age: 76 Year
  Sex: Male

DRUGS (7)
  1. CYMBALTA [Suspect]
     Dosage: UNK
     Dates: end: 20121010
  2. THERALENE [Concomitant]
     Dosage: UNK
     Dates: end: 20121010
  3. IXPRIM [Concomitant]
     Dosage: UNK
     Dates: end: 20121002
  4. PREVISCAN [Concomitant]
     Indication: PROPHYLAXIS
     Dosage: UNK
  5. LASILIX [Concomitant]
     Indication: HYPERTENSION
     Dosage: UNK
  6. KARDEGIC [Concomitant]
     Indication: CARDIAC DISORDER
     Dosage: UNK
  7. NOVONORM [Concomitant]
     Indication: TYPE 2 DIABETES MELLITUS
     Dosage: UNK

REACTIONS (2)
  - Pyrexia [Unknown]
  - Confusional state [Not Recovered/Not Resolved]
